FAERS Safety Report 7477954-2 (Version None)
Quarter: 2011Q2

REPORT INFORMATION
  Report Type: 
  Country: None (occurrence: None)
  Receive Date: 20110511
  Receipt Date: 20110511
  Transmission Date: 20111010
  Serious: Yes (Other)
  Sender: FDA-Public Use
  Company Number: None

PATIENT
  Sex: Female
  Weight: 96.6162 kg

DRUGS (1)
  1. CHANTIX [Suspect]
     Dosage: 1 DAILY PO
     Route: 048
     Dates: start: 20110201, end: 20110501

REACTIONS (1)
  - RASH [None]
